FAERS Safety Report 5819225-3 (Version None)
Quarter: 2008Q3

REPORT INFORMATION
  Report Type: 
  Country: None (occurrence: None)
  Receive Date: 20080721
  Receipt Date: 20080721
  Transmission Date: 20090109
  Serious: Yes (Life-Threatening, Hospitalization, Other)
  Sender: FDA-Public Use
  Company Number: None

PATIENT
  Age: 44 Year
  Sex: Female
  Weight: 52.1637 kg

DRUGS (2)
  1. CYMBALTA [Suspect]
     Indication: ANXIETY
     Dosage: 60MG 1 DAILY PO
     Route: 048
     Dates: start: 20080401, end: 20080719
  2. CYMBALTA [Suspect]
     Indication: NEURALGIA
     Dosage: 60MG 1 DAILY PO
     Route: 048
     Dates: start: 20080401, end: 20080719

REACTIONS (20)
  - ABDOMINAL DISTENSION [None]
  - ABNORMAL DREAMS [None]
  - AGGRESSION [None]
  - AMNESIA [None]
  - ANOREXIA [None]
  - CRYING [None]
  - DIARRHOEA [None]
  - DIZZINESS [None]
  - DRUG WITHDRAWAL SYNDROME [None]
  - FAECAL INCONTINENCE [None]
  - FEELING ABNORMAL [None]
  - FORMICATION [None]
  - HYPOAESTHESIA FACIAL [None]
  - IMPAIRED DRIVING ABILITY [None]
  - NAUSEA [None]
  - NIGHT SWEATS [None]
  - NIGHTMARE [None]
  - PAIN [None]
  - VISION BLURRED [None]
  - WEIGHT DECREASED [None]
